FAERS Safety Report 18313898 (Version 1)
Quarter: 2020Q3

REPORT INFORMATION
  Report Type: Report from Study
  Country: US (occurrence: US)
  Receive Date: 20200925
  Receipt Date: 20200925
  Transmission Date: 20201103
  Serious: Yes (Other)
  Sender: FDA-Public Use
  Company Number: US-MYLANLABS-2020M1081809

PATIENT

DRUGS (2)
  1. SILDENAFIL. [Suspect]
     Active Substance: SILDENAFIL
     Indication: NEOPLASM
     Dosage: 50 MILLIGRAM, QD, DAYS 1 THROUGH 21 OF EACH 28?DAY CYCLE
     Route: 048
  2. REGORAFENIB. [Suspect]
     Active Substance: REGORAFENIB
     Indication: NEOPLASM
     Dosage: 160 MILLIGRAM, QD, DAYS 1 THROUGH 21 OF EACH 28?DAY CYCLE
     Route: 048

REACTIONS (2)
  - Lipase increased [Unknown]
  - Off label use [Unknown]
